FAERS Safety Report 6059091-7 (Version None)
Quarter: 2009Q1

REPORT INFORMATION
  Report Type: 
  Country: None (occurrence: None)
  Receive Date: 20090130
  Receipt Date: 20090122
  Transmission Date: 20090719
  Serious: Yes (Hospitalization)
  Sender: FDA-Public Use
  Company Number: FR-JNJFOC-20090105239

PATIENT
  Age: 86 Year
  Sex: Female

DRUGS (6)
  1. TAVANIC [Suspect]
     Indication: LUNG INFECTION
     Route: 048
  2. PREVISCAN [Interacting]
     Indication: ARRHYTHMIA
     Route: 048
  3. PREDNISONE TAB [Concomitant]
     Indication: POLYMYALGIA RHEUMATICA
     Route: 048
  4. ACTONEL [Concomitant]
     Indication: POLYMYALGIA RHEUMATICA
     Route: 048
  5. OMEPRAZOLE [Concomitant]
     Indication: GASTROINTESTINAL DISORDER THERAPY
     Dosage: GASTRO-RESISTANT CAPSULES IN 2005
     Route: 048
  6. AMIODARONE HCL [Concomitant]
     Indication: ARRHYTHMIA
     Route: 048

REACTIONS (3)
  - DRUG INTERACTION [None]
  - INTERNATIONAL NORMALISED RATIO INCREASED [None]
  - MUSCLE HAEMORRHAGE [None]
